FAERS Safety Report 7646434-3 (Version None)
Quarter: 2011Q3

REPORT INFORMATION
  Report Type: 
  Country: None (occurrence: None)
  Receive Date: 20110725
  Receipt Date: 20110719
  Transmission Date: 20111222
  Serious: Yes (Hospitalization)
  Sender: FDA-Public Use
  Company Number: 2011SP017094

PATIENT
  Age: 68 Year
  Sex: Male
  Weight: 42.2 kg

DRUGS (8)
  1. REBETOL [Suspect]
     Indication: HEPATITIS C
     Dosage: 200 MG;BID;PO
     Route: 048
     Dates: start: 20100217
  2. PEG-INTRON [Suspect]
     Indication: HEPATITIS C
     Dosage: 60 MCG;QW;SC
     Route: 058
     Dates: end: 20110323
  3. PEG-INTRON [Suspect]
     Indication: HEPATITIS C
     Dosage: 60 MCG;QW;SC
     Route: 058
     Dates: start: 20100217
  4. FERON	/05982701/ [Concomitant]
  5. LENDORMIN [Concomitant]
  6. OLOPATADINE HCL [Concomitant]
  7. LASIX [Concomitant]
  8. ALDACTONE [Concomitant]

REACTIONS (5)
  - HEAD INJURY [None]
  - DIZZINESS [None]
  - FALL [None]
  - SUBDURAL HAEMATOMA [None]
  - MALAISE [None]
